FAERS Safety Report 15580356 (Version 1)
Quarter: 2018Q4

REPORT INFORMATION
  Report Type: Spontaneous
  Country: SE (occurrence: SE)
  Receive Date: 20181102
  Receipt Date: 20181102
  Transmission Date: 20190205
  Serious: Yes (Other)
  Sender: FDA-Public Use
  Company Number: SE-ASTRAZENECA-2014SE04691

PATIENT
  Age: 50 Year
  Sex: Female
  Weight: 67.5 kg

DRUGS (3)
  1. SEROQUEL [Suspect]
     Active Substance: QUETIAPINE FUMARATE
     Indication: BIPOLAR DISORDER
     Dosage: 100.0MG UNKNOWN
     Route: 048
     Dates: start: 201206, end: 20130220
  2. LITHIONIT [Suspect]
     Active Substance: LITHIUM SULFATE
     Indication: BIPOLAR DISORDER
     Route: 048
     Dates: start: 201206
  3. SEROQUEL [Suspect]
     Active Substance: QUETIAPINE FUMARATE
     Indication: BIPOLAR DISORDER
     Route: 048
     Dates: start: 201206, end: 20130220

REACTIONS (2)
  - Visual impairment [Not Recovered/Not Resolved]
  - Headache [Not Recovered/Not Resolved]

NARRATIVE: CASE EVENT DATE: 201211
